FAERS Safety Report 11814662 (Version 1)
Quarter: 2015Q4

REPORT INFORMATION
  Report Type: Spontaneous
  Country: US (occurrence: US)
  Receive Date: 20151209
  Receipt Date: 20151209
  Transmission Date: 20160305
  Serious: No
  Sender: FDA-Public Use
  Company Number: US-CELGENEUS-USA-2015116679

PATIENT
  Age: 43 Year
  Sex: Female
  Weight: 84.44 kg

DRUGS (1)
  1. OTEZLA [Suspect]
     Active Substance: APREMILAST
     Indication: PSORIATIC ARTHROPATHY
     Dosage: 60 MILLIGRAM
     Route: 048
     Dates: start: 20151106

REACTIONS (2)
  - Upper respiratory tract infection [Not Recovered/Not Resolved]
  - Blood pressure increased [Not Recovered/Not Resolved]

NARRATIVE: CASE EVENT DATE: 201511
